FAERS Safety Report 9473038 (Version 1)
Quarter: 2013Q3

REPORT INFORMATION
  Report Type: Spontaneous
  Country: US (occurrence: US)
  Receive Date: 20130823
  Receipt Date: 20130823
  Transmission Date: 20140515
  Serious: No
  Sender: FDA-Public Use
  Company Number: US-BRISTOL-MYERS SQUIBB COMPANY-17355223

PATIENT
  Age: 65 Year
  Sex: Male
  Weight: 92.97 kg

DRUGS (1)
  1. SPRYCEL (CML) TABS 20 MG [Suspect]
     Indication: CHRONIC MYELOID LEUKAEMIA

REACTIONS (8)
  - Rash [Unknown]
  - Erythema [Unknown]
  - Dry skin [Unknown]
  - Skin fissures [Unknown]
  - Pain of skin [Unknown]
  - Skin haemorrhage [Unknown]
  - Skin exfoliation [Unknown]
  - Drug dose omission [Unknown]
